FAERS Safety Report 6355694-0 (Version None)
Quarter: 2009Q3

REPORT INFORMATION
  Report Type: 
  Country: None (occurrence: None)
  Receive Date: 20090910
  Receipt Date: 20090831
  Transmission Date: 20100115
  Serious: Yes (Other)
  Sender: FDA-Public Use
  Company Number: 2009SP022923

PATIENT
  Sex: Female

DRUGS (2)
  1. DESLORATADINE [Suspect]
     Indication: DRUG USE FOR UNKNOWN INDICATION
     Dosage: ; PO
     Route: 048
  2. LORATADINE [Suspect]
     Indication: DRUG USE FOR UNKNOWN INDICATION
     Dosage: ; PO
     Route: 048

REACTIONS (6)
  - CYANOSIS [None]
  - DIZZINESS [None]
  - FEELING HOT [None]
  - HYPERHIDROSIS [None]
  - LOSS OF CONSCIOUSNESS [None]
  - VOMITING [None]
